FAERS Safety Report 8559521-2 (Version None)
Quarter: 2012Q3

REPORT INFORMATION
  Report Type: 
  Country: None (occurrence: None)
  Receive Date: 20120802
  Receipt Date: 20120725
  Transmission Date: 20120928
  Serious: Yes (Other)
  Sender: FDA-Public Use
  Company Number: US-BAYER-2012-032428

PATIENT
  Age: 24 Year
  Sex: Female
  Weight: 76.19 kg

DRUGS (4)
  1. YAZ [Suspect]
     Indication: MENSTRUAL CYCLE MANAGEMENT
     Dosage: UNK
     Route: 048
     Dates: start: 20080808, end: 20090601
  2. BENTYL [Concomitant]
     Dosage: 20 MG, QID, AS NEEDED
     Route: 048
  3. YASMIN [Suspect]
     Indication: MENSTRUAL CYCLE MANAGEMENT
     Dosage: UNK
     Dates: start: 20030913, end: 20031101
  4. LORTAB [Concomitant]
     Indication: ABDOMINAL PAIN
     Dosage: 5/500 TABLET, 1-2 TABLETS, EVERY 4 TO 6 HOURS AS NEEDED
     Route: 048

REACTIONS (4)
  - ABDOMINAL PAIN [None]
  - CHOLECYSTITIS ACUTE [None]
  - CHOLELITHIASIS [None]
  - PAIN [None]
